FAERS Safety Report 6257757-7 (Version None)
Quarter: 2009Q3

REPORT INFORMATION
  Report Type: 
  Country: None (occurrence: None)
  Receive Date: 20090706
  Receipt Date: 20090429
  Transmission Date: 20100115
  Serious: Yes (Death, Other)
  Sender: FDA-Public Use
  Company Number: PHHY2009GB04965

PATIENT

DRUGS (7)
  1. CLOZARIL [Suspect]
     Indication: SCHIZOPHRENIA
     Dosage: 600 MG DAILY
     Route: 048
     Dates: start: 19930816
  2. VALPROATE SODIUM [Concomitant]
     Indication: AFFECTIVE DISORDER
     Dosage: 600 MG NOCTE
     Route: 048
  3. AMISULPRIDE [Concomitant]
     Indication: SCHIZOPHRENIA
     Dosage: 600 MG, BID
     Route: 048
  4. THIAMINE HCL [Concomitant]
     Indication: MALNUTRITION
     Dosage: 100 MG, BID
     Route: 048
  5. FOLIC ACID [Concomitant]
     Indication: MALNUTRITION
     Dosage: 5 MG DAILY
     Route: 048
  6. TRIHEXYPHENIDYL [Concomitant]
     Indication: PARKINSONISM
     Dosage: 2 MG, BID
     Route: 048
  7. DRUG THERAPY NOS [Concomitant]
     Indication: PSORIASIS

REACTIONS (17)
  - ADRENAL ADENOMA [None]
  - AORTIC ARTERIOSCLEROSIS [None]
  - ARTERIOSCLEROSIS CORONARY ARTERY [None]
  - BRONCHIAL SECRETION RETENTION [None]
  - BRONCHITIS [None]
  - BRONCHOPNEUMONIA [None]
  - CARDIAC HYPERTROPHY [None]
  - CARDIOMEGALY [None]
  - CORONARY ARTERY STENOSIS [None]
  - DILATATION ATRIAL [None]
  - DILATATION VENTRICULAR [None]
  - HYPERTENSIVE HEART DISEASE [None]
  - PSORIASIS [None]
  - PULMONARY CONGESTION [None]
  - PULMONARY OEDEMA [None]
  - PURULENT DISCHARGE [None]
  - SCHIZOPHRENIA [None]
